FAERS Safety Report 22231906 (Version 1)
Quarter: 2023Q2

REPORT INFORMATION
  Report Type: Spontaneous
  Country: US (occurrence: None)
  Receive Date: 20230420
  Receipt Date: 20230420
  Transmission Date: 20230722
  Serious: No
  Sender: FDA-Public Use
  Company Number: US-ROCHE-3120457

PATIENT
  Sex: Female

DRUGS (4)
  1. ESBRIET [Suspect]
     Active Substance: PIRFENIDONE
     Indication: Idiopathic pulmonary fibrosis
     Dosage: ONGOIGN; UNK; 1 TAB 3 TIMES DAILY/1 WEEK, 2 TABS 3 TIMES DAILY/1 WEEK, 3 TABS 3 TIMES DAILY WITH MEA
     Route: 048
     Dates: start: 20220520
  2. LORAZEPAM [Concomitant]
     Active Substance: LORAZEPAM
  3. MECLIZINE HYDROCHLORIDE [Concomitant]
     Active Substance: MECLIZINE HYDROCHLORIDE
  4. ROSUVASTATIN [Concomitant]
     Active Substance: ROSUVASTATIN

REACTIONS (2)
  - Illness [Recovered/Resolved]
  - Decreased appetite [Recovered/Resolved]
